FAERS Safety Report 24977914 (Version 3)
Quarter: 2025Q3

REPORT INFORMATION
  Report Type: Spontaneous
  Country: JP (occurrence: JP)
  Receive Date: 20250217
  Receipt Date: 20250802
  Transmission Date: 20251021
  Serious: Yes (Other)
  Sender: ALEXION PHARMACEUTICALS
  Company Number: JP-ASTRAZENECA-202502JPN010628JP

PATIENT
  Age: 59 Year
  Sex: Female

DRUGS (11)
  1. ULTOMIRIS [Suspect]
     Active Substance: RAVULIZUMAB-CWVZ
     Indication: Neuromyelitis optica spectrum disorder
     Dosage: 2900 MILLIGRAM, QW
     Route: 065
     Dates: start: 20240110, end: 20240124
  2. TEGRETOL [Concomitant]
     Active Substance: CARBAMAZEPINE
     Indication: Neuromyelitis optica spectrum disorder
     Dosage: 100 MILLIGRAM, QD
     Dates: start: 20211124
  3. PREGABALIN [Concomitant]
     Active Substance: PREGABALIN
     Indication: Neuromyelitis optica spectrum disorder
     Dosage: 150 MILLIGRAM, BID
     Dates: start: 20230704
  4. BROTIZOLAM [Concomitant]
     Active Substance: BROTIZOLAM
     Indication: Insomnia
     Dosage: 0.25 MILLIGRAM, QD
  5. HYALURONATE SODIUM [Concomitant]
     Active Substance: HYALURONATE SODIUM
     Indication: Dry eye
     Dosage: 2 DOSAGE FORM, TID (DROPS)
  6. NEXIUM [Concomitant]
     Active Substance: ESOMEPRAZOLE MAGNESIUM
     Indication: Prophylaxis
     Dosage: 20 MILLIGRAM, QD
  7. FD+C RED NO. 3 [Concomitant]
     Active Substance: FD+C RED NO. 3
     Indication: Pneumonia bacterial
     Dosage: 200 MILLIGRAM, BID
     Dates: start: 20220720
  8. AMBROXOL HYDROCHLORIDE [Concomitant]
     Active Substance: AMBROXOL HYDROCHLORIDE
     Indication: Pneumonia bacterial
     Dosage: 45 MILLIGRAM, QD
     Dates: start: 20230725, end: 20240507
  9. RIFAMPIN [Concomitant]
     Active Substance: RIFAMPIN
     Indication: Pneumonia bacterial
     Dosage: 300 MILLIGRAM, QD
     Dates: start: 20230728
  10. MAGNESIUM OXIDE [Concomitant]
     Active Substance: MAGNESIUM OXIDE
     Indication: Constipation
     Dosage: 330 MILLIGRAM, TID
     Dates: start: 20230925
  11. SITAFLOXACIN [Concomitant]
     Active Substance: SITAFLOXACIN
     Indication: Pseudomonas infection
     Dosage: 100 MILLIGRAM, QD
     Dates: start: 20230721

REACTIONS (1)
  - Neuromyelitis optica spectrum disorder [Not Recovered/Not Resolved]

NARRATIVE: CASE EVENT DATE: 20240124
